FAERS Safety Report 5689396-0 (Version None)
Quarter: 2008Q1

REPORT INFORMATION
  Report Type: 
  Country: None (occurrence: None)
  Receive Date: 20080331
  Receipt Date: 20080317
  Transmission Date: 20080703
  Serious: Yes (Hospitalization)
  Sender: FDA-Public Use
  Company Number: US-AMGEN-US267609

PATIENT
  Sex: Female
  Weight: 77.1 kg

DRUGS (15)
  1. ROMIPLOSTIM [Suspect]
     Indication: THROMBOCYTOPENIA
     Dates: start: 20080213
  2. NEULASTA [Suspect]
     Indication: CHEMOTHERAPY
     Route: 058
     Dates: start: 20080213
  3. RITUXIMAB [Suspect]
     Route: 042
     Dates: start: 20080212
  4. CYCLOPHOSPHAMIDE [Suspect]
     Route: 042
     Dates: start: 20080212
  5. DOXORUBICIN HYDROCHLORIDE [Suspect]
     Route: 042
     Dates: start: 20080212
  6. VINCRISTINE [Suspect]
     Route: 042
     Dates: start: 20080212
  7. PREDNISONE [Suspect]
     Route: 048
     Dates: start: 20080212
  8. DIPROLENE [Concomitant]
     Route: 061
  9. BACTROBAN [Concomitant]
     Route: 061
  10. SILVADENE [Concomitant]
     Route: 061
  11. PLAQUENIL [Concomitant]
  12. DARVON [Concomitant]
     Route: 048
  13. POTASSIUM CHLORIDE [Concomitant]
     Route: 065
  14. PEPCID [Concomitant]
     Route: 048
  15. SENOKOT [Concomitant]
     Route: 048

REACTIONS (9)
  - ANAEMIA [None]
  - DRUG ERUPTION [None]
  - FACIAL PAIN [None]
  - FEBRILE NEUTROPENIA [None]
  - MUCOSAL INFLAMMATION [None]
  - ORAL PAIN [None]
  - PLATELET COUNT DECREASED [None]
  - UPPER RESPIRATORY TRACT INFECTION [None]
  - WHITE BLOOD CELL COUNT DECREASED [None]
